FAERS Safety Report 8325721 (Version 4)
Quarter: 2014Q2

REPORT INFORMATION
  Report Type: Spontaneous
  Country: US (occurrence: None)
  Receive Date: 20111227
  Receipt Date: 20140512
  Transmission Date: 20141212
  Serious: Yes (Death, Hospitalization, Other)
  Sender: FDA-Public Use
  Company Number: 2011SGN00366

PATIENT
  Age: 50 Year
  Sex: Male

DRUGS (1)
  1. ADCETRIS [Suspect]
     Indication: HODGKIN^S DISEASE
     Dosage: Q21D, INTRAVENOUS 1.2 MG/KG, Q21D
     Route: 042
     Dates: start: 20110914, end: 20111024

REACTIONS (12)
  - Hodgkin^s disease [None]
  - Central nervous system lesion [None]
  - Progressive multifocal leukoencephalopathy [None]
  - Dizziness [None]
  - Hypoaesthesia [None]
  - Neuropathy peripheral [None]
  - Fall [None]
  - Subarachnoid haemorrhage [None]
  - JC virus test positive [None]
  - Wheelchair user [None]
  - General physical health deterioration [None]
  - Areflexia [None]
